FAERS Safety Report 11059071 (Version 2)
Quarter: 2015Q2

REPORT INFORMATION
  Report Type: Spontaneous
  Country: US (occurrence: US)
  Receive Date: 20150423
  Receipt Date: 20150629
  Transmission Date: 20150821
  Serious: Yes (Other)
  Sender: FDA-Public Use
  Company Number: US-TEVA-553162USA

PATIENT
  Age: 42 Year

DRUGS (2)
  1. NUVIGIL [Suspect]
     Active Substance: ARMODAFINIL
     Indication: CIRCADIAN RHYTHM SLEEP DISORDER
     Dates: start: 20150321, end: 20150322
  2. LAMICTAL [Suspect]
     Active Substance: LAMOTRIGINE
     Dates: start: 20150321

REACTIONS (3)
  - Major depression [Unknown]
  - Generalised anxiety disorder [Unknown]
  - Akathisia [Recovered/Resolved]

NARRATIVE: CASE EVENT DATE: 20150323
